FAERS Safety Report 10009814 (Version 2)
Quarter: 2014Q1

REPORT INFORMATION
  Report Type: Spontaneous
  Country: US (occurrence: US)
  Receive Date: 20140312
  Receipt Date: 20140312
  Transmission Date: 20141002
  Serious: Yes (Other)
  Sender: FDA-Public Use
  Company Number: US-INCYTE CORPORATION-2012IN002596

PATIENT
  Age: 54 Year
  Sex: 0

DRUGS (1)
  1. JAKAFI [Suspect]
     Indication: SPLENOMEGALY
     Dosage: 10 MG, BID
     Route: 048
     Dates: start: 20120904, end: 20121216

REACTIONS (5)
  - Haemoglobin decreased [Not Recovered/Not Resolved]
  - Disease progression [Not Recovered/Not Resolved]
  - Platelet count decreased [Not Recovered/Not Resolved]
  - Abdominal pain [Unknown]
  - Dyspnoea [Unknown]
